FAERS Safety Report 13792445 (Version 1)
Quarter: 2017Q3

REPORT INFORMATION
  Report Type: Spontaneous
  Country: GR (occurrence: GR)
  Receive Date: 20170725
  Receipt Date: 20170725
  Transmission Date: 20171127
  Serious: Yes (Hospitalization)
  Sender: FDA-Public Use
  Company Number: GR-ASTRAZENECA-2017SE35236

PATIENT
  Age: 63 Year
  Sex: Male
  Weight: 74 kg

DRUGS (2)
  1. SYMBICORT [Suspect]
     Active Substance: BUDESONIDE\FORMOTEROL FUMARATE DIHYDRATE
     Indication: WHEEZING
     Dosage: 160/4.5 MCG, TWO DOSES TWICE DAILY
     Route: 055
     Dates: start: 20170326, end: 20170329
  2. ZITHROMAX [Concomitant]
     Active Substance: AZITHROMYCIN DIHYDRATE
     Indication: WHEEZING
     Dosage: ONE DOSE ONCE DAILY
     Route: 048
     Dates: start: 20170326, end: 20170329

REACTIONS (3)
  - Dysgeusia [Unknown]
  - Wound [Unknown]
  - Tongue coated [Unknown]

NARRATIVE: CASE EVENT DATE: 20170326
